FAERS Safety Report 5739999-X (Version None)
Quarter: 2008Q2

REPORT INFORMATION
  Report Type: 
  Country: None (occurrence: None)
  Receive Date: 20080516
  Receipt Date: 20080507
  Transmission Date: 20081010
  Serious: Yes (Hospitalization)
  Sender: FDA-Public Use
  Company Number: US-AMGEN-QUU265731

PATIENT
  Sex: Male
  Weight: 115.8 kg

DRUGS (17)
  1. ENBREL [Suspect]
     Indication: PSORIASIS
     Route: 058
     Dates: start: 20040924
  2. INFLUENZA VACCINE [Concomitant]
     Dates: start: 20070101, end: 20070101
  3. PAXIL [Concomitant]
  4. TRICOR [Concomitant]
     Route: 048
  5. ASPIRIN [Concomitant]
  6. OMEGA 3 [Concomitant]
     Route: 048
  7. XANAX [Concomitant]
  8. ZOCOR [Concomitant]
  9. INSPRA [Concomitant]
     Route: 048
  10. LANTUS [Concomitant]
     Route: 058
  11. PLAVIX [Concomitant]
  12. LISINOPRIL [Concomitant]
     Route: 048
  13. LASIX [Concomitant]
  14. OXYGEN [Concomitant]
  15. COREG [Concomitant]
  16. GLUCOPHAGE [Concomitant]
     Route: 048
  17. ENDOCET [Concomitant]

REACTIONS (13)
  - ABDOMINAL PAIN [None]
  - ANGINA PECTORIS [None]
  - ANXIETY [None]
  - CHEST PAIN [None]
  - COUGH [None]
  - DYSPNOEA [None]
  - FLATULENCE [None]
  - HYPOTENSION [None]
  - NASOPHARYNGITIS [None]
  - NAUSEA [None]
  - PSORIASIS [None]
  - STRESS [None]
  - VOMITING [None]
